FAERS Safety Report 14944854 (Version 1)
Quarter: 2020Q3

REPORT INFORMATION
  Report Type: Report from Study
  Country: US (occurrence: US)
  Receive Date: 20180529
  Receipt Date: 20180529
  Transmission Date: 20201104
  Serious: Yes (Hospitalization)
  Sender: FDA-Public Use
  Company Number: US-ROCHE-2124909

PATIENT
  Age: 68 Year
  Sex: Female
  Weight: 116.68 kg

DRUGS (3)
  1. PERTUZUMAB. [Suspect]
     Active Substance: PERTUZUMAB
     Indication: BREAST CANCER
     Route: 042
     Dates: start: 20180424
  2. TASELISIB. [Suspect]
     Active Substance: TASELISIB
     Indication: BREAST CANCER
     Route: 048
     Dates: start: 20180508
  3. TRASTUZUMAB. [Suspect]
     Active Substance: TRASTUZUMAB
     Indication: BREAST CANCER
     Route: 042
     Dates: start: 20180424

REACTIONS (2)
  - Rectal haemorrhage [Unknown]
  - Cellulitis [Unknown]

NARRATIVE: CASE EVENT DATE: 20180514
